FAERS Safety Report 9288260 (Version 4)
Quarter: 2013Q4

REPORT INFORMATION
  Report Type: Spontaneous
  Country: DK (occurrence: DK)
  Receive Date: 20130514
  Receipt Date: 20131217
  Transmission Date: 20140711
  Serious: Yes (Other)
  Sender: FDA-Public Use
  Company Number: PHHY2013DK046457

PATIENT
  Age: 47 Year
  Sex: Female
  Weight: 65 kg

DRUGS (2)
  1. TRILEPTAL [Suspect]
     Indication: TRIGEMINAL NEURALGIA
     Dosage: 3 DF, DAILY
     Route: 048
     Dates: start: 20101118, end: 20101125
  2. ZEBINIX [Concomitant]
     Indication: TRIGEMINAL NEURALGIA
     Dosage: UNK UKN, UNK
     Route: 048
     Dates: start: 201010, end: 201011

REACTIONS (1)
  - Suicidal ideation [Recovered/Resolved]
